FAERS Safety Report 8268655-1 (Version None)
Quarter: 2012Q2

REPORT INFORMATION
  Report Type: 
  Country: None (occurrence: None)
  Receive Date: 20120409
  Receipt Date: 20120328
  Transmission Date: 20120825
  Serious: Yes (Hospitalization)
  Sender: FDA-Public Use
  Company Number: US-ROCHE-1055321

PATIENT
  Sex: Female

DRUGS (3)
  1. AVASTIN [Suspect]
     Indication: MALIGNANT PERITONEAL NEOPLASM
     Dosage: TOTAL DOSE:1100 MG, LAST ADMINISTERED:20/FEB/2012
  2. CISPLATIN [Suspect]
     Indication: MALIGNANT PERITONEAL NEOPLASM
     Dosage: TOTAL DOSE:140 MG, LAST ADMINISTERED:21/FEB/2012
     Dates: start: 20111128
  3. PACLITAXEL [Suspect]
     Indication: MALIGNANT PERITONEAL NEOPLASM
     Dosage: TOTAL DOSE:360MG, LAST ADMINISTERED:27/FEB/2012
     Dates: start: 20111128

REACTIONS (1)
  - BURSITIS [None]
